FAERS Safety Report 16756643 (Version 2)
Quarter: 2019Q3

REPORT INFORMATION
  Report Type: Report from Study
  Country: US (occurrence: US)
  Receive Date: 20190829
  Receipt Date: 20190906
  Transmission Date: 20191005
  Serious: Yes (Death, Hospitalization)
  Sender: FDA-Public Use
  Company Number: PHEH2019US035712

PATIENT
  Age: 42 Year
  Sex: Female
  Weight: 70.75 kg

DRUGS (1)
  1. ZORTRESS [Suspect]
     Active Substance: EVEROLIMUS
     Indication: TRANSPLANT
     Dosage: UNK
     Route: 048
     Dates: start: 20190528

REACTIONS (3)
  - Hepatic haemorrhage [Not Recovered/Not Resolved]
  - Cardiogenic shock [Fatal]
  - Hepatic enzyme abnormal [Unknown]

NARRATIVE: CASE EVENT DATE: 20190816
